FAERS Safety Report 7605708-2 (Version None)
Quarter: 2011Q3

REPORT INFORMATION
  Report Type: 
  Country: None (occurrence: None)
  Receive Date: 20110713
  Receipt Date: 20110706
  Transmission Date: 20111222
  Serious: Yes (Life-Threatening, Hospitalization, Other)
  Sender: FDA-Public Use
  Company Number: FR-PFIZER INC-2011150703

PATIENT
  Age: 38 Year
  Sex: Male

DRUGS (4)
  1. XANAX [Suspect]
     Dosage: 0.5 MG, UNK
     Route: 048
     Dates: start: 20110516, end: 20110519
  2. PROPRANOLOL [Suspect]
     Dosage: 40 MG, UNK
     Route: 048
     Dates: start: 20110501
  3. MIRTAZAPINE [Suspect]
     Dosage: 15 MG, UNK
     Route: 048
     Dates: start: 20101001, end: 20110519
  4. ESCITALOPRAM [Suspect]
     Dosage: 20 MG, UNK
     Route: 048
     Dates: start: 20100901, end: 20110519

REACTIONS (5)
  - TOXICITY TO VARIOUS AGENTS [None]
  - REYE'S SYNDROME [None]
  - HEPATITIS ACUTE [None]
  - INFLAMMATION [None]
  - HEPATIC STEATOSIS [None]
